FAERS Safety Report 7526442-3 (Version None)
Quarter: 2011Q2

REPORT INFORMATION
  Report Type: 
  Country: None (occurrence: None)
  Receive Date: 20110606
  Receipt Date: 20110524
  Transmission Date: 20111010
  Serious: Yes (Other)
  Sender: FDA-Public Use
  Company Number: US-CELGENEUS-163-21880-11041317

PATIENT
  Sex: Female
  Weight: 63.6 kg

DRUGS (8)
  1. REVLIMID [Suspect]
     Dosage: 5 MILLIGRAM
     Route: 048
     Dates: start: 20100401
  2. ZOLOFT [Concomitant]
     Route: 065
  3. CALCIUM + D [Concomitant]
     Route: 065
  4. ASPIRIN [Concomitant]
     Route: 065
  5. REVLIMID [Suspect]
     Indication: MULTIPLE MYELOMA
     Dosage: 25 MILLIGRAM
     Route: 048
     Dates: start: 20090401
  6. REVLIMID [Suspect]
     Dosage: 25 MILLIGRAM
     Route: 048
     Dates: start: 20100501
  7. ATIVAN [Concomitant]
     Route: 065
  8. SIMVASTATIN [Concomitant]
     Route: 065

REACTIONS (2)
  - CARPAL TUNNEL SYNDROME [None]
  - DIARRHOEA [None]
